FAERS Safety Report 6621902-1 (Version None)
Quarter: 2010Q1

REPORT INFORMATION
  Report Type: 
  Country: None (occurrence: None)
  Receive Date: 20100309
  Receipt Date: 20100304
  Transmission Date: 20100710
  Serious: Yes (Hospitalization)
  Sender: FDA-Public Use
  Company Number: JP-MERCK-1003USA01000

PATIENT
  Age: 66 Year
  Sex: Female

DRUGS (8)
  1. JANUVIA [Suspect]
     Indication: TYPE 2 DIABETES MELLITUS
     Route: 048
     Dates: start: 20100224
  2. GLIMICRON [Suspect]
     Indication: TYPE 2 DIABETES MELLITUS
     Route: 048
     Dates: end: 20100301
  3. MELBIN [Concomitant]
     Route: 048
  4. ADALAT CC [Concomitant]
     Route: 048
  5. ASPIRIN [Concomitant]
     Route: 048
  6. LASIX [Concomitant]
     Route: 065
  7. COZAAR [Concomitant]
     Route: 048
  8. LIVALO [Concomitant]
     Route: 048

REACTIONS (1)
  - HYPOGLYCAEMIA [None]
